FAERS Safety Report 6865804-4 (Version None)
Quarter: 2010Q3

REPORT INFORMATION
  Report Type: 
  Country: None (occurrence: None)
  Receive Date: 20100720
  Receipt Date: 20100416
  Transmission Date: 20110219
  Serious: No
  Sender: FDA-Public Use
  Company Number: 010898

PATIENT
  Age: 45 Year
  Sex: Male

DRUGS (4)
  1. VIMPAT [Suspect]
     Indication: PARTIAL SEIZURES
     Dosage: (MAXIMUM DOSE: 300 MG; INCREASE OF 50 MG/WEEK.) ; (300 MG)
     Dates: start: 20090731
  2. LEVETIRACETAM [Concomitant]
  3. CARBAMAZEPINE [Concomitant]
  4. PREGABALIN [Concomitant]

REACTIONS (1)
  - CARDIAC FLUTTER [None]
